FAERS Safety Report 4319555-0 (Version None)
Quarter: 2004Q1

REPORT INFORMATION
  Report Type: 
  Country: None (occurrence: None)
  Receive Date: 20040316
  Receipt Date: 20040302
  Transmission Date: 20041129
  Serious: Yes (Hospitalization, Other)
  Sender: FDA-Public Use
  Company Number: USA040360659

PATIENT
  Age: 89 Year
  Sex: Male

DRUGS (2)
  1. TAPAZOLE [Suspect]
     Dosage: 10 MG/1 DAY
  2. RAMIPRIL [Concomitant]

REACTIONS (2)
  - CARDIAC FAILURE CONGESTIVE [None]
  - RENAL FAILURE [None]
